FAERS Safety Report 15002436 (Version 1)
Quarter: 2018Q2

REPORT INFORMATION
  Report Type: Spontaneous
  Country: SE (occurrence: SE)
  Receive Date: 20180612
  Receipt Date: 20180612
  Transmission Date: 20180711
  Serious: Yes (Other)
  Sender: FDA-Public Use
  Company Number: SE-MYLANLABS-2018M1038949

PATIENT
  Age: 79 Year
  Sex: Female
  Weight: 85 kg

DRUGS (3)
  1. ALVEDON [Suspect]
     Active Substance: ACETAMINOPHEN
     Indication: ANALGESIC THERAPY
     Dosage: 3990 MG, QD, (2 TABLETTER 3 G?NGER/DYGN)
     Dates: start: 20180116, end: 20180303
  2. TRAMADOL. [Suspect]
     Active Substance: TRAMADOL
     Indication: ANALGESIC THERAPY
     Dosage: FR?N 1 TABLETT TILL 2 TABLETTER 3 G?NGER/DYGN
  3. SAROTEN [Suspect]
     Active Substance: AMITRIPTYLINE
     Indication: ANALGESIC THERAPY
     Dosage: 1/D F?RSTA VECKAN 2 F?LJANDE VECKA UPP  TILL 5 TABLETTER/DAG

REACTIONS (6)
  - Ageusia [Recovering/Resolving]
  - Nightmare [Recovering/Resolving]
  - Anosmia [Recovering/Resolving]
  - Dry mouth [Recovering/Resolving]
  - Amnesia [Recovering/Resolving]
  - Decreased appetite [Recovering/Resolving]

NARRATIVE: CASE EVENT DATE: 201802
